FAERS Safety Report 22539496 (Version 1)
Quarter: 2023Q2

REPORT INFORMATION
  Report Type: Spontaneous
  Country: US (occurrence: US)
  Receive Date: 20230609
  Receipt Date: 20230609
  Transmission Date: 20230722
  Serious: No
  Sender: FDA-Public Use
  Company Number: US-GLAXOSMITHKLINE-US2023AMR079303

PATIENT
  Sex: Female

DRUGS (2)
  1. ZEJULA [Suspect]
     Active Substance: NIRAPARIB
     Indication: Endometrial cancer
     Dosage: 200 MG, QD
     Route: 048
     Dates: start: 20230313
  2. ZEJULA [Suspect]
     Active Substance: NIRAPARIB
     Dosage: 1 DF

REACTIONS (2)
  - Blood pressure increased [Unknown]
  - Cardiac disorder [Unknown]
